FAERS Safety Report 9515277 (Version 3)
Quarter: 2013Q4

REPORT INFORMATION
  Report Type: Spontaneous
  Country: US (occurrence: US)
  Receive Date: 20130911
  Receipt Date: 20131008
  Transmission Date: 20140711
  Serious: No
  Sender: FDA-Public Use
  Company Number: US-TEVA-431320USA

PATIENT
  Age: 25 Year
  Sex: Female
  Weight: 84.44 kg

DRUGS (1)
  1. PARAGARD 380A [Suspect]
     Indication: CONTRACEPTION
     Dates: start: 20130903, end: 20130906

REACTIONS (3)
  - Device expulsion [Recovered/Resolved]
  - Medical device complication [Recovered/Resolved]
  - Complication of device insertion [Recovered/Resolved]
